FAERS Safety Report 6152867-7 (Version None)
Quarter: 2009Q2

REPORT INFORMATION
  Report Type: 
  Country: None (occurrence: None)
  Receive Date: 20090413
  Receipt Date: 20090406
  Transmission Date: 20091009
  Serious: Yes (Other)
  Sender: FDA-Public Use
  Company Number: PHHY2009DE09807

PATIENT
  Sex: Male
  Weight: 87 kg

DRUGS (6)
  1. RASILEZ [Suspect]
     Indication: HYPERTENSION
     Dosage: 150MG/DAY
  2. TRIAMTEREN COMP.-RATIOPHARM [Concomitant]
     Dosage: 50/25 MG
  3. BISOPROLOL FUMARATE [Concomitant]
     Dosage: 10 MG
  4. CARMEN [Concomitant]
     Dosage: 10 MG
  5. MARCUMAR [Concomitant]
  6. ENALAPRIL [Concomitant]
     Dosage: 20 MG

REACTIONS (2)
  - NEURITIS [None]
  - VERTIGO [None]
